FAERS Safety Report 7825195-9 (Version None)
Quarter: 2011Q4

REPORT INFORMATION
  Report Type: 
  Country: None (occurrence: None)
  Receive Date: 20111014
  Receipt Date: 20110706
  Transmission Date: 20120403
  Serious: Yes (Other)
  Sender: FDA-Public Use
  Company Number: 2011SP031497

PATIENT
  Age: 5 Year
  Sex: Female

DRUGS (1)
  1. CEDAX [Suspect]
     Indication: ANGINA PECTORIS
     Dosage: UNKNOWN;ORAL_SUS;PO;QD
     Route: 048
     Dates: start: 20110629, end: 20110703

REACTIONS (2)
  - HAEMATOCHEZIA [None]
  - DIARRHOEA [None]
